FAERS Safety Report 11437781 (Version 1)
Quarter: 2015Q3

REPORT INFORMATION
  Report Type: Spontaneous
  Country: US (occurrence: US)
  Receive Date: 20150831
  Receipt Date: 20150831
  Transmission Date: 20151125
  Serious: Yes (Hospitalization)
  Sender: FDA-Public Use
  Company Number: US-TEVA-589395USA

PATIENT
  Age: 24 Year
  Sex: Male

DRUGS (4)
  1. PYRIDOXINE [Suspect]
     Active Substance: PYRIDOXINE
     Indication: POLYNEUROPATHY
     Dosage: 600 MILLIGRAM DAILY;
     Route: 065
  2. METHYLPREDNISOLONE. [Suspect]
     Active Substance: METHYLPREDNISOLONE
     Indication: INFLAMMATION
     Dosage: 60MG
     Route: 065
  3. PYRIDOXINE [Suspect]
     Active Substance: PYRIDOXINE
     Indication: HYPEROXALURIA
     Dosage: 300 MILLIGRAM DAILY;
     Route: 065
  4. PYRIDOXINE [Suspect]
     Active Substance: PYRIDOXINE
     Indication: GENE MUTATION
     Route: 065

REACTIONS (2)
  - Polyneuropathy [Recovering/Resolving]
  - Toxicity to various agents [Recovering/Resolving]
